FAERS Safety Report 11475132 (Version 1)
Quarter: 2015Q3

REPORT INFORMATION
  Report Type: Spontaneous
  Country: US (occurrence: None)
  Receive Date: 20150908
  Receipt Date: 20150908
  Transmission Date: 20151125
  Serious: Yes (Other)
  Sender: FDA-Public Use
  Company Number: None

PATIENT
  Age: 60 Year
  Sex: Male
  Weight: 115.67 kg

DRUGS (1)
  1. REMICADE [Suspect]
     Active Substance: INFLIXIMAB
     Indication: COLITIS
     Dosage: AS NEEDED  INTO A VEIN

REACTIONS (4)
  - Joint swelling [None]
  - Pain in extremity [None]
  - Sunburn [None]
  - Peripheral swelling [None]

NARRATIVE: CASE EVENT DATE: 20150701
